FAERS Safety Report 5394777-9 (Version None)
Quarter: 2007Q3

REPORT INFORMATION
  Report Type: 
  Country: None (occurrence: None)
  Receive Date: 20070723
  Receipt Date: 20070712
  Transmission Date: 20080115
  Serious: Yes (Hospitalization)
  Sender: FDA-Public Use
  Company Number: US-PFIZER INC-2007058043

PATIENT
  Sex: Female
  Weight: 59 kg

DRUGS (5)
  1. CELEBREX [Suspect]
     Indication: ARTHRITIS
     Dosage: DAILY DOSE:100MG
     Route: 048
     Dates: start: 20040219, end: 20050315
  2. CELEBREX [Suspect]
     Dosage: DAILY DOSE:200MG
     Route: 048
     Dates: start: 20030203, end: 20050624
  3. IBUPROFEN [Concomitant]
  4. ACETYLSALICYLIC ACID SRT [Concomitant]
  5. ACETAMINOPHEN [Concomitant]

REACTIONS (2)
  - CEREBROVASCULAR ACCIDENT [None]
  - THROMBOSIS [None]
